FAERS Safety Report 5643679-9 (Version None)
Quarter: 2008Q1

REPORT INFORMATION
  Report Type: 
  Country: None (occurrence: None)
  Receive Date: 20080228
  Receipt Date: 20080218
  Transmission Date: 20080703
  Serious: Yes (Hospitalization)
  Sender: FDA-Public Use
  Company Number: FR-GILEAD-2008-0015409

PATIENT
  Sex: Male
  Weight: 54 kg

DRUGS (11)
  1. TRUVADA [Suspect]
     Indication: HIV INFECTION
     Route: 048
     Dates: start: 20080118, end: 20080131
  2. KALETRA [Suspect]
     Indication: HIV INFECTION
     Route: 048
     Dates: start: 20080118, end: 20080131
  3. ADIAZINE [Suspect]
     Indication: CEREBRAL TOXOPLASMOSIS
     Route: 048
     Dates: start: 20080108, end: 20080131
  4. MALOCIDE [Suspect]
     Indication: CEREBRAL TOXOPLASMOSIS
     Route: 048
     Dates: start: 20080108, end: 20080131
  5. TRIFLUCAN [Suspect]
     Route: 048
     Dates: start: 20080123, end: 20080131
  6. ACUPAN [Concomitant]
  7. MOTILIUM [Concomitant]
  8. INIPOMP [Concomitant]
  9. LEDERFOLINE [Concomitant]
  10. NICOPATCH [Concomitant]
  11. IMOVANE [Concomitant]

REACTIONS (4)
  - ANURIA [None]
  - BACK PAIN [None]
  - CALCULUS URETERIC [None]
  - POSTRENAL FAILURE [None]
